APPROVED DRUG PRODUCT: RISEDRONATE SODIUM
Active Ingredient: RISEDRONATE SODIUM
Strength: 35MG
Dosage Form/Route: TABLET, DELAYED RELEASE;ORAL
Application: A203217 | Product #001 | TE Code: AB
Applicant: TEVA PHARMACEUTICALS USA
Approved: May 18, 2015 | RLD: No | RS: No | Type: RX